FAERS Safety Report 10331662 (Version 1)
Quarter: 2014Q3

REPORT INFORMATION
  Report Type: Spontaneous
  Country: GB (occurrence: None)
  Receive Date: 20140718
  Receipt Date: 20140718
  Transmission Date: 20150326
  Serious: Yes (Other)
  Sender: FDA-Public Use
  Company Number: COL_16576_2014

PATIENT
  Age: 4 Year
  Sex: Male

DRUGS (2)
  1. COLGATE DURAPHAT [Suspect]
     Active Substance: SODIUM FLUORIDE
     Indication: PROPHYLAXIS
     Dosage: ONE TIME
     Route: 048
     Dates: start: 20140609, end: 20140609
  2. COLGATE DURAPHAT [Suspect]
     Active Substance: SODIUM FLUORIDE
     Indication: DENTAL CARIES
     Dosage: ONE TIME
     Route: 048
     Dates: start: 20140609, end: 20140609

REACTIONS (4)
  - Tongue ulceration [None]
  - Lip ulceration [None]
  - Mouth ulceration [None]
  - Oral pain [None]

NARRATIVE: CASE EVENT DATE: 20140609
